FAERS Safety Report 4888846-7 (Version None)
Quarter: 2005Q4

REPORT INFORMATION
  Report Type: 
  Country: None (occurrence: None)
  Receive Date: 20051215
  Receipt Date: 20050610
  Transmission Date: 20060501
  Serious: Yes (Other)
  Sender: FDA-Public Use
  Company Number: 2005088513

PATIENT
  Sex: Male

DRUGS (2)
  1. BEXTRA [Suspect]
     Indication: ARTHRITIS
     Dates: start: 20020601
  2. BEXTRA [Suspect]
     Indication: PAIN
     Dates: start: 20020601

REACTIONS (1)
  - MYOCARDIAL INFARCTION [None]
